FAERS Safety Report 5209958-4 (Version None)
Quarter: 2006Q4

REPORT INFORMATION
  Report Type: 
  Country: None (occurrence: None)
  Receive Date: 20061128
  Receipt Date: 20060814
  Transmission Date: 20070319
  Serious: Yes (Other)
  Sender: FDA-Public Use
  Company Number: 2006098331

PATIENT
  Age: 64 Year
  Sex: Male
  Weight: 108.8633 kg

DRUGS (8)
  1. TIKOSYN [Suspect]
     Indication: ATRIAL FIBRILLATION
     Dosage: SEE IMAGE
     Route: 048
     Dates: start: 20060613
  2. TIKOSYN [Suspect]
     Indication: ATRIAL FIBRILLATION
     Dosage: SEE IMAGE
     Route: 048
     Dates: start: 20060615
  3. TIKOSYN [Suspect]
     Indication: ATRIAL FIBRILLATION
     Dosage: SEE IMAGE
     Route: 048
     Dates: start: 20060703
  4. COUMADIN [Concomitant]
  5. HYTRIN [Concomitant]
  6. RED YEAST RICE (RED YEAST RICE) [Concomitant]
  7. OMEGA 3 (FISH OIL) [Concomitant]
  8. MULTI-VITAMINS [Concomitant]

REACTIONS (4)
  - ARRHYTHMIA [None]
  - ELECTROCARDIOGRAM Q WAVE ABNORMAL [None]
  - FATIGUE [None]
  - HEADACHE [None]
